FAERS Safety Report 15159073 (Version 1)
Quarter: 2018Q3

REPORT INFORMATION
  Report Type: Spontaneous
  Country: US (occurrence: US)
  Receive Date: 20180620
  Receipt Date: 20180620
  Transmission Date: 20181010
  Serious: No
  Sender: FDA-Public Use
  Company Number: None

PATIENT
  Age: 65 Year
  Sex: Male

DRUGS (1)
  1. SUTENT [Suspect]
     Active Substance: SUNITINIB MALATE
     Route: 048
     Dates: start: 20180328, end: 20180619

REACTIONS (5)
  - Gastrointestinal disorder [None]
  - Diarrhoea [None]
  - Decreased appetite [None]
  - Neutrophil count decreased [None]
  - Nausea [None]

NARRATIVE: CASE EVENT DATE: 20180619
